FAERS Safety Report 8758148 (Version 1)
Quarter: 2012Q4

REPORT INFORMATION
  Report Type: 
  Country: RU (occurrence: RU)
  Receive Date: 20120828
  Receipt Date: 20120828
  Transmission Date: 20130627
  Serious: Yes (Hospitalization)
  Sender: FDA-Public Use
  Company Number: PHHY2012RU072908

PATIENT
  Age: 17 Year
  Sex: Female

DRUGS (1)
  1. PARACETAMOL [Suspect]
     Dosage: 40 tablets (total 20g, 360-400 mg/kg)
     Route: 048
     Dates: start: 20101115

REACTIONS (20)
  - Suicide attempt [Recovered/Resolved]
  - Coagulopathy [Recovered/Resolved]
  - Hepatic failure [Recovered/Resolved]
  - Hepatomegaly [Recovered/Resolved]
  - Nausea [Recovered/Resolved]
  - Yellow skin [Recovered/Resolved]
  - Hepatic necrosis [Recovered/Resolved]
  - Abdominal pain upper [Recovered/Resolved]
  - Mucosal discolouration [Recovered/Resolved]
  - Asthenia [Recovered/Resolved]
  - Abdominal pain [Not Recovered/Not Resolved]
  - Vomiting [Recovered/Resolved]
  - Chromaturia [Recovered/Resolved]
  - Toxic encephalopathy [Recovered/Resolved]
  - Dyspnoea [Recovered/Resolved]
  - Sluggishness [Recovered/Resolved]
  - Nephropathy [Recovered/Resolved]
  - Oliguria [Recovered/Resolved]
  - Leukopenia [Recovered/Resolved]
  - Intentional overdose [Recovered/Resolved]
